FAERS Safety Report 10769474 (Version 1)
Quarter: 2015Q1

REPORT INFORMATION
  Report Type: Spontaneous
  Country: US (occurrence: None)
  Receive Date: 20150205
  Receipt Date: 20150205
  Transmission Date: 20150721
  Serious: Yes (Hospitalization)
  Sender: FDA-Public Use
  Company Number: None

PATIENT
  Age: 80 Year
  Sex: Male
  Weight: 116 kg

DRUGS (20)
  1. ELIQUIS [Suspect]
     Active Substance: APIXABAN
     Indication: ATRIAL FIBRILLATION
     Dosage: CHRONIC?
     Route: 048
  2. COLCHICINE. [Concomitant]
     Active Substance: COLCHICINE
  3. PRILOSEC [Concomitant]
     Active Substance: OMEPRAZOLE MAGNESIUM
  4. ALEVE [Suspect]
     Active Substance: NAPROXEN SODIUM
     Dosage: 220MG, PO ONCE PRN PAIN
     Route: 048
  5. FUROSEMIDE. [Concomitant]
     Active Substance: FUROSEMIDE
  6. FLEXERIL [Concomitant]
     Active Substance: CYCLOBENZAPRINE HYDROCHLORIDE
  7. ASPIRIN. [Suspect]
     Active Substance: ASPIRIN
     Indication: ATRIAL FIBRILLATION
     Dosage: ?, DAILY, PO
     Route: 048
  8. ZAROXOLYN [Concomitant]
     Active Substance: METOLAZONE
  9. TOPROL XL [Concomitant]
     Active Substance: METOPROLOL SUCCINATE
  10. KDUR [Concomitant]
  11. ELIQUIS [Suspect]
     Active Substance: APIXABAN
     Indication: MUSCULOSKELETAL PAIN
     Dosage: CHRONIC?
     Route: 048
  12. JANUMET [Concomitant]
     Active Substance: METFORMIN HYDROCHLORIDE\SITAGLIPTIN PHOSPHATE
  13. VITAMIN D [Concomitant]
     Active Substance: CHOLECALCIFEROL
  14. MAG OX [Concomitant]
     Active Substance: MAGNESIUM OXIDE
  15. PRAVACHOL [Concomitant]
     Active Substance: PRAVASTATIN SODIUM
  16. ZOLOFT [Concomitant]
     Active Substance: SERTRALINE HYDROCHLORIDE
  17. CEPHALEXIN. [Concomitant]
     Active Substance: CEPHALEXIN
  18. ALLOPURINOL. [Concomitant]
     Active Substance: ALLOPURINOL
  19. RAPAFLOW [Concomitant]
  20. MECLIZINE [Concomitant]
     Active Substance: MECLIZINE\MECLIZINE HYDROCHLORIDE

REACTIONS (6)
  - Gastrointestinal arteriovenous malformation [None]
  - Gastric ulcer [None]
  - Haemorrhagic anaemia [None]
  - Gastrointestinal angiodysplasia [None]
  - Diverticulum intestinal [None]
  - Gastrointestinal haemorrhage [None]

NARRATIVE: CASE EVENT DATE: 20141012
